FAERS Safety Report 7810628-4 (Version None)
Quarter: 2011Q4

REPORT INFORMATION
  Report Type: 
  Country: None (occurrence: None)
  Receive Date: 20111013
  Receipt Date: 20111005
  Transmission Date: 20120403
  Serious: No
  Sender: FDA-Public Use
  Company Number: US-BIOGENIDEC-2011BI038190

PATIENT
  Age: 51 Year
  Sex: Female

DRUGS (4)
  1. TYSABRI [Suspect]
     Indication: MULTIPLE SCLEROSIS
     Route: 042
     Dates: start: 20100121
  2. AVONEX [Concomitant]
     Route: 030
     Dates: start: 20010725
  3. AVONEX [Concomitant]
     Route: 030
     Dates: start: 20050714, end: 20091217
  4. AVONEX [Concomitant]
     Indication: MULTIPLE SCLEROSIS
     Route: 030
     Dates: start: 20100101

REACTIONS (1)
  - GAIT DISTURBANCE [None]
